FAERS Safety Report 8965574 (Version 1)
Quarter: 2012Q4

REPORT INFORMATION
  Report Type: Spontaneous
  Country: US (occurrence: None)
  Receive Date: 20121212
  Receipt Date: 20121212
  Transmission Date: 20130627
  Serious: Yes (Other)
  Sender: FDA-Public Use
  Company Number: None

PATIENT
  Age: 9 Year
  Sex: Male

DRUGS (2)
  1. METHYLPHENIDATE [Suspect]
     Indication: ADHD
     Dosage: 27MG     ONCE IN AM    po
     Route: 048
     Dates: start: 20121016, end: 20121017
  2. METHYLPHENIDATE [Suspect]
     Dosage: 18MG    ONCE IN AM    po
     Route: 048
     Dates: start: 20120320, end: 20121015

REACTIONS (1)
  - Psychotic disorder [None]
